FAERS Safety Report 11308521 (Version 1)
Quarter: 2015Q3

REPORT INFORMATION
  Report Type: Spontaneous
  Country: US (occurrence: US)
  Receive Date: 20150724
  Receipt Date: 20150724
  Transmission Date: 20151125
  Serious: No
  Sender: FDA-Public Use
  Company Number: US-BIOGENIDEC-2015BI102801

PATIENT
  Sex: Female

DRUGS (1)
  1. AVONEX [Suspect]
     Active Substance: INTERFERON BETA-1A
     Indication: MULTIPLE SCLEROSIS
     Route: 030
     Dates: start: 20030101, end: 20060101

REACTIONS (8)
  - Depressed mood [Unknown]
  - Feeling of despair [Unknown]
  - Hypoaesthesia [Unknown]
  - Abasia [Unknown]
  - Crying [Unknown]
  - Multiple sclerosis [Unknown]
  - Feeling cold [Unknown]
  - Asthenia [Unknown]
